FAERS Safety Report 9926060 (Version 3)
Quarter: 2014Q1

REPORT INFORMATION
  Report Type: Report from Study
  Country: PL (occurrence: PL)
  Receive Date: 20140226
  Receipt Date: 20140228
  Transmission Date: 20141002
  Serious: Yes (Death, Hospitalization)
  Sender: FDA-Public Use
  Company Number: PHHO2014PL001816

PATIENT
  Sex: 0

DRUGS (4)
  1. AFINITOR [Suspect]
     Indication: BREAST CANCER METASTATIC
     Dosage: 10 MG, QD
     Route: 048
     Dates: start: 20131127
  2. AFINITOR [Suspect]
     Dosage: UNK
     Route: 048
     Dates: start: 20131220, end: 20140128
  3. EXEMESTANE [Suspect]
     Indication: BREAST CANCER METASTATIC
     Dosage: 25 MG, QD
     Route: 048
     Dates: start: 20131127, end: 20140128
  4. TRANSTEC [Concomitant]
     Indication: BONE PAIN
     Dosage: UNK
     Dates: start: 20131113

REACTIONS (3)
  - Respiratory failure [Fatal]
  - Circulatory collapse [Fatal]
  - Dyspnoea [Not Recovered/Not Resolved]
